FAERS Safety Report 6313026-8 (Version None)
Quarter: 2009Q3

REPORT INFORMATION
  Report Type: 
  Country: None (occurrence: None)
  Receive Date: 20090814
  Receipt Date: 20090814
  Transmission Date: 20100115
  Serious: Yes (Other)
  Sender: FDA-Public Use
  Company Number: None

PATIENT
  Age: 61 Year
  Sex: Male
  Weight: 113.3993 kg

DRUGS (2)
  1. CYMBALTA [Suspect]
     Indication: DEPRESSION
     Dosage: ONCE PER DAY PO
     Route: 048
     Dates: start: 20010101, end: 20090812
  2. TRAMADOL [Suspect]
     Indication: PAIN
     Dosage: ONE OR 2 TABLETS AS NEEDED PO
     Route: 048
     Dates: start: 20090714, end: 20090724

REACTIONS (3)
  - ARTHRALGIA [None]
  - DEPRESSION [None]
  - DRUG INTERACTION [None]
